FAERS Safety Report 21159125 (Version 1)
Quarter: 2022Q3

REPORT INFORMATION
  Report Type: Report from Study
  Country: DE (occurrence: DE)
  Receive Date: 20220802
  Receipt Date: 20220802
  Transmission Date: 20221027
  Serious: Yes (Hospitalization)
  Sender: FDA-Public Use
  Company Number: DE-ABBVIE-22K-062-4489053-00

PATIENT
  Age: 33 Year
  Sex: Female

DRUGS (3)
  1. SKYRIZI [Suspect]
     Active Substance: RISANKIZUMAB-RZAA
     Indication: Psoriasis
     Route: 058
     Dates: start: 20210309
  2. VALDOXAN [Concomitant]
     Active Substance: AGOMELATINE
     Indication: Depression
     Route: 048
     Dates: start: 20190315
  3. FLUOXETINE HYDROCHLORIDE [Concomitant]
     Active Substance: FLUOXETINE HYDROCHLORIDE
     Indication: Depression
     Route: 048
     Dates: start: 20200110

REACTIONS (2)
  - Myocardial infarction [Recovered/Resolved]
  - Type IIa hyperlipidaemia [Recovered/Resolved]

NARRATIVE: CASE EVENT DATE: 20211129
